FAERS Safety Report 11661349 (Version 3)
Quarter: 2015Q4

REPORT INFORMATION
  Report Type: Spontaneous
  Country: RO (occurrence: RO)
  Receive Date: 20151026
  Receipt Date: 20151028
  Transmission Date: 20160304
  Serious: Yes (Death, Hospitalization, Other)
  Sender: FDA-Public Use
  Company Number: RO-ABBVIE-15K-135-1487360-00

PATIENT
  Age: 54 Year
  Sex: Female
  Weight: 65 kg

DRUGS (3)
  1. CICLOSPORIN [Suspect]
     Active Substance: CYCLOSPORINE
     Indication: RHEUMATOID ARTHRITIS
     Route: 048
     Dates: start: 20130904, end: 201510
  2. HUMIRA [Suspect]
     Active Substance: ADALIMUMAB
     Indication: RHEUMATOID ARTHRITIS
     Route: 058
     Dates: start: 20111215, end: 201509
  3. ARAVA [Suspect]
     Active Substance: LEFLUNOMIDE
     Indication: RHEUMATOID ARTHRITIS
     Route: 048
     Dates: start: 20110117, end: 201510

REACTIONS (6)
  - Vomiting [Unknown]
  - Sepsis [Fatal]
  - Furuncle [Unknown]
  - Diarrhoea [Unknown]
  - Cataract [Unknown]
  - Cardiopulmonary failure [Fatal]

NARRATIVE: CASE EVENT DATE: 2015
